FAERS Safety Report 17140977 (Version 2)
Quarter: 2019Q4

REPORT INFORMATION
  Report Type: Spontaneous
  Country: US (occurrence: US)
  Receive Date: 20191211
  Receipt Date: 20191220
  Transmission Date: 20200122
  Serious: No
  Sender: FDA-Public Use
  Company Number: US-PFIZER INC-2018360591

PATIENT
  Age: 67 Year
  Sex: Male
  Weight: 111.1 kg

DRUGS (6)
  1. TIKOSYN [Suspect]
     Active Substance: DOFETILIDE
     Dosage: 125 UG, 3X/DAY
  2. TIKOSYN [Suspect]
     Active Substance: DOFETILIDE
     Indication: ATRIAL FIBRILLATION
     Dosage: 0.375 MG, 2X/DAY
     Route: 048
     Dates: start: 2017, end: 201808
  3. TIKOSYN [Suspect]
     Active Substance: DOFETILIDE
     Dosage: 125 UG, 2X/DAY (3 CAPSULES IN THE MORNING AND 3 CAPSULES IN THE EVENING)
  4. ELIQUIS [Concomitant]
     Active Substance: APIXABAN
     Indication: ANTICOAGULANT THERAPY
     Dosage: UNK
     Dates: start: 2017
  5. TIKOSYN [Suspect]
     Active Substance: DOFETILIDE
     Dosage: 125 UG, 2X/DAY (3 CAPSULES BY MOUTH TWICE DAILY)
  6. TIKOSYN [Suspect]
     Active Substance: DOFETILIDE
     Indication: CARDIAC FAILURE CONGESTIVE
     Dosage: 375 UG, 2X/DAY

REACTIONS (1)
  - Osteoarthritis [Unknown]
